FAERS Safety Report 6147801-X (Version None)
Quarter: 2009Q2

REPORT INFORMATION
  Report Type: 
  Country: None (occurrence: None)
  Receive Date: 20090402
  Receipt Date: 20081222
  Transmission Date: 20091009
  Serious: No
  Sender: FDA-Public Use
  Company Number: 1000004135

PATIENT
  Age: 69 Year
  Sex: Female

DRUGS (6)
  1. BYSTOLIC [Suspect]
     Indication: HYPERTENSION
     Dosage: 5 MG (5 MG, 1 IN 1 D) ORAL
     Route: 048
     Dates: start: 20080906, end: 20081020
  2. HYDROCHLOROTHIAZIDE WITH TRIAMTERENE (TRIAMTERENE, HYDROCHLOROTHIAZIDE [Concomitant]
  3. BENICAR [Concomitant]
  4. TRAMADOL HCL [Concomitant]
  5. ASPIRIN [Concomitant]
  6. PRESERVISION LUTEIN EYE VITA + MIN, SUP.SOFTG. (XANTOFYL, ASCORBIC ACI [Concomitant]

REACTIONS (4)
  - ASTHENIA [None]
  - DIZZINESS [None]
  - HEART RATE DECREASED [None]
  - HYPOTENSION [None]
